FAERS Safety Report 7832295-6 (Version None)
Quarter: 2011Q4

REPORT INFORMATION
  Report Type: 
  Country: None (occurrence: None)
  Receive Date: 20111022
  Receipt Date: 20111011
  Transmission Date: 20120403
  Serious: Yes (Other)
  Sender: FDA-Public Use
  Company Number: US-BAYER-2011-098069

PATIENT
  Sex: Female

DRUGS (3)
  1. YASMIN [Suspect]
     Dosage: UNK
     Route: 048
     Dates: start: 20070201, end: 20100701
  2. YAZ [Suspect]
     Dosage: UNK
     Route: 048
     Dates: start: 20070201, end: 20100701
  3. DROSPIRENONE AND ETHINYL ESTRADIOL [Suspect]
     Dosage: UNK
     Route: 048
     Dates: start: 20070201, end: 20100701

REACTIONS (5)
  - PAIN [None]
  - PULMONARY EMBOLISM [None]
  - CHOLECYSTECTOMY [None]
  - THROMBOSIS [None]
  - INJURY [None]
